FAERS Safety Report 10633420 (Version 2)
Quarter: 2014Q4

REPORT INFORMATION
  Report Type: Spontaneous
  Country: US (occurrence: US)
  Receive Date: 20141205
  Receipt Date: 20141205
  Transmission Date: 20150529
  Serious: Yes (Hospitalization, Other)
  Sender: FDA-Public Use
  Company Number: US-BRISTOL-MYERS SQUIBB COMPANY-15075419

PATIENT
  Age: 56 Year
  Sex: Female
  Weight: 49.43 kg

DRUGS (19)
  1. ADDERALL [Concomitant]
     Active Substance: AMPHETAMINE ASPARTATE\AMPHETAMINE SULFATE\DEXTROAMPHETAMINE SACCHARATE\DEXTROAMPHETAMINE SULFATE
  2. PROPRANOLOL [Concomitant]
     Active Substance: PROPRANOLOL\PROPRANOLOL HYDROCHLORIDE
  3. PEPCID [Concomitant]
     Active Substance: FAMOTIDINE
  4. OXYCONTIN [Concomitant]
     Active Substance: OXYCODONE HYDROCHLORIDE
  5. FOLIC ACID. [Concomitant]
     Active Substance: FOLIC ACID
  6. COMPAZINE SR [Concomitant]
  7. ORENCIA [Suspect]
     Active Substance: ABATACEPT
     Indication: RHEUMATOID ARTHRITIS
     Dosage: 24MAR2010
     Route: 042
     Dates: start: 2005
  8. ORENCIA [Suspect]
     Active Substance: ABATACEPT
     Indication: SCLERODERMA
     Dosage: 24MAR2010
     Route: 042
     Dates: start: 2005
  9. PREDNISONE. [Suspect]
     Active Substance: PREDNISONE
  10. IMITREX [Concomitant]
     Active Substance: SUMATRIPTAN\SUMATRIPTAN SUCCINATE
  11. POTASSIUM [Concomitant]
     Active Substance: POTASSIUM
  12. DIAZEPAM. [Concomitant]
     Active Substance: DIAZEPAM
  13. DIFLUCAN [Concomitant]
     Active Substance: FLUCONAZOLE
  14. ORENCIA [Suspect]
     Active Substance: ABATACEPT
     Indication: VASCULITIS
     Dosage: 24MAR2010
     Route: 042
     Dates: start: 2005
  15. PREMARIN [Concomitant]
     Active Substance: ESTROGENS, CONJUGATED
  16. ROBAXIN [Concomitant]
     Active Substance: METHOCARBAMOL
  17. LASIX [Concomitant]
     Active Substance: FUROSEMIDE
  18. ORENCIA [Suspect]
     Active Substance: ABATACEPT
     Indication: SYSTEMIC LUPUS ERYTHEMATOSUS
     Dosage: 24MAR2010
     Route: 042
     Dates: start: 2005
  19. VITAMIN D [Concomitant]
     Active Substance: CHOLECALCIFEROL

REACTIONS (4)
  - Osteoporosis [Unknown]
  - Arthralgia [Unknown]
  - Localised infection [Unknown]
  - Osteomyelitis [Unknown]

NARRATIVE: CASE EVENT DATE: 201003
